FAERS Safety Report 6234079-1 (Version None)
Quarter: 2009Q2

REPORT INFORMATION
  Report Type: 
  Country: None (occurrence: None)
  Receive Date: 20090612
  Receipt Date: 20090601
  Transmission Date: 20091009
  Serious: Yes (Life-Threatening, Hospitalization)
  Sender: FDA-Public Use
  Company Number: POMP-1000577

PATIENT
  Age: 5 Month
  Sex: Female
  Weight: 5.9 kg

DRUGS (3)
  1. MYOZYME [Suspect]
     Indication: GLYCOGEN STORAGE DISEASE TYPE II
     Dosage: 20 MG/KG, QOW, INTRAVENOUS 10 MG/KG, QW, INTRAVENOUS
     Route: 042
     Dates: start: 20090424
  2. DOBUTAMINE HCL [Concomitant]
  3. MILRINONE LACTATE [Concomitant]

REACTIONS (11)
  - APNOEA [None]
  - BLOOD PH DECREASED [None]
  - BLOOD POTASSIUM INCREASED [None]
  - BLOOD SODIUM DECREASED [None]
  - CARDIOGENIC SHOCK [None]
  - CYTOKINE RELEASE SYNDROME [None]
  - HAEMATOCRIT DECREASED [None]
  - HAEMOGLOBIN DECREASED [None]
  - MYOCARDIAL INFARCTION [None]
  - PLATELET COUNT DECREASED [None]
  - VENTRICULAR HYPERTROPHY [None]
